FAERS Safety Report 19197053 (Version 1)
Quarter: 2021Q2

REPORT INFORMATION
  Report Type: Other
  Country: CN (occurrence: CN)
  Receive Date: 20210430
  Receipt Date: 20210430
  Transmission Date: 20210717
  Serious: Yes (Other)
  Sender: FDA-Public Use
  Company Number: CN-ROCHE-2816676

PATIENT

DRUGS (2)
  1. CAPECITABINE. [Suspect]
     Active Substance: CAPECITABINE
     Indication: COLORECTAL CANCER
     Dosage: AFTER MEALS IN THE MORNING AND EVENING
     Route: 048
  2. OXALIPLATIN. [Suspect]
     Active Substance: OXALIPLATIN
     Indication: COLORECTAL CANCER
     Dosage: FOR 3 HOURS
     Route: 041

REACTIONS (4)
  - Gastrointestinal disorder [Unknown]
  - Renal injury [Unknown]
  - Mouth injury [Unknown]
  - Drug ineffective [Unknown]
